FAERS Safety Report 10149715 (Version 4)
Quarter: 2014Q3

REPORT INFORMATION
  Report Type: Spontaneous
  Country: GB (occurrence: GB)
  Receive Date: 20140502
  Receipt Date: 20140821
  Transmission Date: 20150326
  Serious: Yes (Death, Other)
  Sender: FDA-Public Use
  Company Number: PHFR2014GB002807

PATIENT
  Sex: Female

DRUGS (1)
  1. CLOZARIL [Suspect]
     Active Substance: CLOZAPINE
     Dosage: UKN
     Route: 048
     Dates: start: 20110208

REACTIONS (2)
  - Circulatory collapse [Unknown]
  - Parkinson^s disease [Fatal]
